FAERS Safety Report 7564247-8 (Version None)
Quarter: 2011Q2

REPORT INFORMATION
  Report Type: 
  Country: None (occurrence: None)
  Receive Date: 20110622
  Receipt Date: 20110608
  Transmission Date: 20111010
  Serious: Yes (Other)
  Sender: FDA-Public Use
  Company Number: PHHY2011BR22958

PATIENT
  Sex: Female

DRUGS (3)
  1. EXELON [Suspect]
     Dosage: 27MG/15CM2, 1 PATCH ONCE A DAY
     Route: 062
  2. EXELON [Suspect]
     Indication: DEMENTIA ALZHEIMER'S TYPE
     Dosage: 9MG/5CM2, 1 PATCH ONCE A DAY
     Route: 062
  3. EXELON [Suspect]
     Dosage: 18MG/10CM2, 1 PATCH ONCE A DAY
     Route: 062

REACTIONS (6)
  - MALNUTRITION [None]
  - RETCHING [None]
  - PALLOR [None]
  - GENERAL PHYSICAL HEALTH DETERIORATION [None]
  - VOMITING [None]
  - AMNESIA [None]
